FAERS Safety Report 7919548-8 (Version None)
Quarter: 2011Q4

REPORT INFORMATION
  Report Type: 
  Country: None (occurrence: None)
  Receive Date: 20111115
  Receipt Date: 20111104
  Transmission Date: 20120403
  Serious: Yes (Life-Threatening, Hospitalization)
  Sender: FDA-Public Use
  Company Number: TCI2011A04657

PATIENT
  Age: 81 Year
  Sex: Male

DRUGS (8)
  1. ISOSORBIDE DINITRATE [Concomitant]
  2. ZETIA [Concomitant]
  3. MEXITIL [Concomitant]
  4. JANUVIA [Concomitant]
  5. ACTOS [Suspect]
     Indication: DIABETES MELLITUS
     Dosage: 30 MG (20 MG, 1 IN 1 D), PER ORAL
     Route: 048
     Dates: start: 20060101, end: 20110819
  6. GLYBURIDE [Concomitant]
  7. ECBARL (CILOSTAZOL) [Concomitant]
  8. HALCION [Concomitant]

REACTIONS (4)
  - BLADDER TRANSITIONAL CELL CARCINOMA [None]
  - URINE CYTOLOGY ABNORMAL [None]
  - CARCINOMA IN SITU [None]
  - CALCULUS URETERIC [None]
